FAERS Safety Report 18138876 (Version 1)
Quarter: 2020Q3

REPORT INFORMATION
  Report Type: Other
  Country: GR (occurrence: GR)
  Receive Date: 20200812
  Receipt Date: 20200812
  Transmission Date: 20201104
  Serious: Yes (Other)
  Sender: FDA-Public Use
  Company Number: GR-ROCHE-2655521

PATIENT
  Age: 73 Year
  Sex: Female

DRUGS (1)
  1. POLATUZUMAB VEDOTIN. [Suspect]
     Active Substance: POLATUZUMAB VEDOTIN
     Indication: PRODUCT USED FOR UNKNOWN INDICATION
     Dosage: 5 CYCLES
     Route: 065
     Dates: end: 20200213

REACTIONS (2)
  - Peripheral sensory neuropathy [Unknown]
  - Stomatitis [Unknown]

NARRATIVE: CASE EVENT DATE: 2020
